FAERS Safety Report 9055816 (Version 1)
Quarter: 2013Q1

REPORT INFORMATION
  Report Type: Spontaneous
  Country: US (occurrence: US)
  Receive Date: 20130206
  Receipt Date: 20130206
  Transmission Date: 20140127
  Serious: Yes (Death, Other)
  Sender: FDA-Public Use
  Company Number: CHPA2013US002362

PATIENT
  Age: 41 Year
  Sex: Male

DRUGS (4)
  1. DEXTROMETHORPHAN HYDROBROMIDE [Suspect]
     Dosage: UNK, UNK
  2. METHADONE [Suspect]
     Dosage: UNK, UNK
  3. PROMETHAZINE [Suspect]
     Dosage: UNK, UNK
  4. PAROXETINE [Suspect]
     Dosage: UNK, UNK

REACTIONS (2)
  - Intentional drug misuse [Fatal]
  - Cardio-respiratory arrest [Unknown]
